FAERS Safety Report 8973217 (Version 2)
Quarter: 2012Q4

REPORT INFORMATION
  Report Type: 
  Country: ES (occurrence: ES)
  Receive Date: 20121219
  Receipt Date: 20121231
  Transmission Date: 20130627
  Serious: No
  Sender: FDA-Public Use
  Company Number: ES-009507513-1212ESP006446

PATIENT
  Age: 53 Year
  Sex: Female

DRUGS (1)
  1. SYCREST [Suspect]
     Dosage: 5 mg, qd
     Route: 060
     Dates: start: 201211, end: 201211

REACTIONS (1)
  - Swollen tongue [Recovered/Resolved]
